FAERS Safety Report 8511649-9 (Version None)
Quarter: 2012Q3

REPORT INFORMATION
  Report Type: 
  Country: None (occurrence: None)
  Receive Date: 20120716
  Receipt Date: 20120711
  Transmission Date: 20120928
  Serious: Yes (Hospitalization)
  Sender: FDA-Public Use
  Company Number: US-PFIZER INC-2012167025

PATIENT
  Sex: Female
  Weight: 61.678 kg

DRUGS (3)
  1. PLAVIX [Concomitant]
     Indication: CARDIAC DISORDER
     Dosage: 75 MG, DAILY
  2. LIPITOR [Suspect]
     Indication: HYPERTENSION
     Dosage: 40 MG, DAILY
  3. TOPROL-XL [Concomitant]
     Indication: CARDIAC DISORDER
     Dosage: 50 MG, UNK

REACTIONS (4)
  - CHEST PAIN [None]
  - ARTHRALGIA [None]
  - MYALGIA [None]
  - MUSCLE SPASMS [None]
